FAERS Safety Report 24154274 (Version 2)
Quarter: 2024Q3

REPORT INFORMATION
  Report Type: Spontaneous
  Country: FR (occurrence: FR)
  Receive Date: 20240730
  Receipt Date: 20240902
  Transmission Date: 20241016
  Serious: Yes (Death)
  Sender: NOVARTIS
  Company Number: FR-002147023-NVSC2024FR155619

PATIENT

DRUGS (1)
  1. LUTATHERA [Suspect]
     Active Substance: LUTETIUM OXODOTREOTIDE LU-177
     Indication: Product used for unknown indication
     Dosage: 7238 MBQ, QD (ONCE (CYCLE 2))
     Route: 065
     Dates: start: 20240717

REACTIONS (1)
  - Death [Fatal]
